FAERS Safety Report 19013083 (Version 1)
Quarter: 2021Q1

REPORT INFORMATION
  Report Type: Spontaneous
  Country: US (occurrence: US)
  Receive Date: 20210316
  Receipt Date: 20210316
  Transmission Date: 20210420
  Serious: No
  Sender: FDA-Public Use
  Company Number: US-FDC LIMITED-2020RIS00107

PATIENT
  Age: 69 Year
  Sex: Male
  Weight: 77.1 kg

DRUGS (7)
  1. OFLOXACIN. [Suspect]
     Active Substance: OFLOXACIN
     Indication: CATARACT OPERATION
  2. LATANOPROST. [Concomitant]
     Active Substance: LATANOPROST
  3. KETOROLAC [Concomitant]
     Active Substance: KETOROLAC TROMETHAMINE
  4. PREDNISOLONE. [Concomitant]
     Active Substance: PREDNISOLONE
     Route: 047
  5. IBRUTINIB [Suspect]
     Active Substance: IBRUTINIB
     Indication: CHEMOTHERAPY
     Dosage: UNK
  6. DORZOLAMIDE?TIMOLOL [Concomitant]
     Active Substance: DORZOLAMIDE\TIMOLOL
  7. OFLOXACIN. [Suspect]
     Active Substance: OFLOXACIN
     Indication: GLAUCOMA DRAINAGE DEVICE PLACEMENT
     Dosage: 1 GTT, 4X/DAY FOR 4?7 DAYS
     Route: 047
     Dates: start: 20200114, end: 20200306

REACTIONS (3)
  - Off label use [Recovered/Resolved]
  - Fatigue [Not Recovered/Not Resolved]
  - Incorrect product administration duration [Recovered/Resolved]

NARRATIVE: CASE EVENT DATE: 2020
